FAERS Safety Report 13401714 (Version 2)
Quarter: 2017Q3

REPORT INFORMATION
  Report Type: Report from Study
  Country: None (occurrence: DE)
  Receive Date: 20170404
  Receipt Date: 20170717
  Transmission Date: 20171127
  Serious: Yes (Hospitalization, Other)
  Sender: FDA-Public Use
  Company Number: DE-ABBVIE-17K-062-1926299-00

PATIENT
  Age: 29 Year
  Sex: Male
  Weight: 66 kg

DRUGS (2)
  1. AZATHIOPRIN [Concomitant]
     Active Substance: AZATHIOPRINE
     Indication: CROHN^S DISEASE
     Dates: start: 200407, end: 201702
  2. HUMIRA [Suspect]
     Active Substance: ADALIMUMAB
     Indication: CROHN^S DISEASE
     Dosage: EVERY 1 OR 2 WEEKS
     Route: 058
     Dates: start: 20120423, end: 201702

REACTIONS (4)
  - Rectal discharge [Unknown]
  - Malignant anorectal neoplasm [Recovering/Resolving]
  - Anorectal stenosis [Unknown]
  - Adverse event [Unknown]

NARRATIVE: CASE EVENT DATE: 20170227
